FAERS Safety Report 4699406-5 (Version None)
Quarter: 2005Q2

REPORT INFORMATION
  Report Type: 
  Country: None (occurrence: None)
  Receive Date: 20050622
  Receipt Date: 20050606
  Transmission Date: 20051028
  Serious: Yes (Life-Threatening, Hospitalization)
  Sender: FDA-Public Use
  Company Number: 215334

PATIENT
  Age: 47 Year
  Sex: Female

DRUGS (3)
  1. HERCEPTIN [Suspect]
     Indication: BREAST CANCER
     Dosage: 585 MG, 3/WEEK, INTRAVENOUS
     Route: 042
     Dates: start: 20050601, end: 20050601
  2. VINORELBINE TARTRATE [Suspect]
     Indication: BREAST CANCER METASTATIC
     Dosage: 70 MG, 1/WEEK, INTRAVENOUS
     Route: 042
     Dates: start: 20050601, end: 20050601
  3. PREDNISONE [Concomitant]

REACTIONS (1)
  - ANAPHYLACTIC REACTION [None]
